FAERS Safety Report 10363932 (Version 1)
Quarter: 2014Q3

REPORT INFORMATION
  Report Type: Spontaneous
  Country: GB (occurrence: None)
  Receive Date: 20140801
  Receipt Date: 20140801
  Transmission Date: 20150326
  Serious: Yes (Life-Threatening, Other)
  Sender: FDA-Public Use
  Company Number: AUR-APL-2014-07829

PATIENT
  Age: 70 Year
  Sex: Male
  Weight: 82.6 kg

DRUGS (2)
  1. AMLODIPINE [Suspect]
     Active Substance: AMLODIPINE BESYLATE
     Indication: HYPERTENSION
     Route: 048
  2. LISINOPRIL (LISINOPRIL) [Concomitant]
     Active Substance: LISINOPRIL

REACTIONS (9)
  - Loss of consciousness [None]
  - Syncope [None]
  - Brain hypoxia [None]
  - Visual impairment [None]
  - Arrhythmia [None]
  - Cold sweat [None]
  - Apparent life threatening event [None]
  - Hypotension [None]
  - Bradycardia [None]

NARRATIVE: CASE EVENT DATE: 2009
